FAERS Safety Report 10461742 (Version 1)
Quarter: 2014Q3

REPORT INFORMATION
  Report Type: Spontaneous
  Country: IN (occurrence: IN)
  Receive Date: 20140918
  Receipt Date: 20140918
  Transmission Date: 20150326
  Serious: Yes (Death)
  Sender: FDA-Public Use
  Company Number: IN-009507513-1409IND007990

PATIENT
  Age: 64 Year
  Sex: Male

DRUGS (2)
  1. REBETOL [Suspect]
     Active Substance: RIBAVIRIN
     Dosage: UNK
     Route: 048
  2. VIRAFERON [Suspect]
     Active Substance: INTERFERON ALFA-2B
     Dosage: STRENGTH: 120 (UNITS NOT PRVODED), DOSE: WEEKLY 1
     Dates: end: 20140907

REACTIONS (2)
  - Asthenia [Fatal]
  - Gastrointestinal infection [Fatal]

NARRATIVE: CASE EVENT DATE: 20140907
